FAERS Safety Report 7164454-2 (Version None)
Quarter: 2010Q4

REPORT INFORMATION
  Report Type: 
  Country: None (occurrence: None)
  Receive Date: 20101215
  Receipt Date: 20101206
  Transmission Date: 20110411
  Serious: Yes (Other)
  Sender: FDA-Public Use
  Company Number: SE-JNJFOC-20101204233

PATIENT
  Age: 6 Decade
  Sex: Female

DRUGS (5)
  1. REMICADE [Suspect]
     Indication: CROHN'S DISEASE
     Dosage: 2ND INFUSION AFTER TREATMENT WAS RE-INTRODUCED
     Route: 042
  2. REMICADE [Suspect]
     Dosage: TOTAL 3 ROUNDS
     Route: 042
  3. PURINETHOL [Concomitant]
  4. TAVEGYL [Concomitant]
     Indication: PROPHYLAXIS
  5. SOLU-CORTEF [Concomitant]
     Indication: PROPHYLAXIS

REACTIONS (6)
  - BLOOD PRESSURE DECREASED [None]
  - CHEST DISCOMFORT [None]
  - DYSPNOEA [None]
  - FLUSHING [None]
  - INFUSION RELATED REACTION [None]
  - LIP DISCOLOURATION [None]
